FAERS Safety Report 6445723-8 (Version None)
Quarter: 2009Q4

REPORT INFORMATION
  Report Type: 
  Country: None (occurrence: None)
  Receive Date: 20091118
  Receipt Date: 20091118
  Transmission Date: 20100525
  Serious: No
  Sender: FDA-Public Use
  Company Number: None

PATIENT
  Age: 10 Month
  Sex: Male
  Weight: 9.0719 kg

DRUGS (1)
  1. C-PHEN DM SYRUP UK UK [Suspect]
     Indication: BRONCHITIS
     Dosage: 1 TEASPOON EVERY 8 HOURS PO
     Route: 048
     Dates: start: 20091107, end: 20091110

REACTIONS (3)
  - DEHYDRATION [None]
  - INTERCEPTED DRUG ADMINISTRATION ERROR [None]
  - MEDICATION ERROR [None]
